FAERS Safety Report 10234974 (Version 1)
Quarter: 2014Q1

REPORT INFORMATION
  Report Type: Spontaneous
  Country: US (occurrence: None)
  Receive Date: 20140306
  Receipt Date: 20140306
  Transmission Date: 20141002
  Serious: Yes (Hospitalization)
  Sender: FDA-Public Use
  Company Number: 163-21880-13093013

PATIENT
  Sex: Male
  Weight: 92.99 kg

DRUGS (10)
  1. REVLIMID (LENALIDOMIDE) CAPSULES [Suspect]
     Indication: PLASMA CELL MYELOMA
     Route: 048
     Dates: start: 201002
  2. CLONAZEPAM(CLONAZEPAM)(UNKNOWN) [Concomitant]
  3. ENOXAPARIN(ENOXAPARIN)(UNKNOWN) [Concomitant]
  4. DECADRON(DEXAMETHASONE)(UNKNOWN) [Concomitant]
  5. HYDROCORTISONE(HYDROCORTISONE)(UNKNOWN) [Concomitant]
  6. B 12(CYAN000BALAMIN)(UNKNOWN) [Concomitant]
  7. D3(COLECALCIFEROL)(UNKNOWN) [Concomitant]
  8. FLOMAX(TAMSULOSIN HYDROCHLORIDE)(UNKNOWN) [Concomitant]
  9. LISINOPRIL(LISINOPRIL)(UNKNOWN) [Concomitant]
  10. ZOFRAN(ONDANSETRON HYDROCHLORIDE)(UNKNOWN) [Concomitant]

REACTIONS (3)
  - Chronic obstructive pulmonary disease [None]
  - Deep vein thrombosis [None]
  - Pulmonary embolism [None]
